APPROVED DRUG PRODUCT: DOBUTAMINE HYDROCHLORIDE IN DEXTROSE 5% IN PLASTIC CONTAINER
Active Ingredient: DOBUTAMINE HYDROCHLORIDE
Strength: EQ 100MG BASE/100ML
Dosage Form/Route: INJECTABLE;INJECTION
Application: N020201 | Product #002 | TE Code: AP
Applicant: HOSPIRA INC
Approved: Oct 19, 1993 | RLD: Yes | RS: Yes | Type: RX